FAERS Safety Report 4961942-1 (Version None)
Quarter: 2006Q2

REPORT INFORMATION
  Report Type: 
  Country: None (occurrence: None)
  Receive Date: 20060404
  Receipt Date: 20050315
  Transmission Date: 20061013
  Serious: Yes (Hospitalization, Other)
  Sender: FDA-Public Use
  Company Number: US-MERCK-0503USA03151

PATIENT
  Age: 61 Year
  Sex: Female
  Weight: 68 kg

DRUGS (11)
  1. DURAGESIC-100 [Concomitant]
     Route: 065
  2. NEURONTIN [Concomitant]
     Route: 065
  3. [THERAPY UNSPECIFIED] [Concomitant]
     Route: 065
  4. DITROPAN XL [Concomitant]
     Route: 065
  5. LAMICTAL [Concomitant]
     Route: 065
  6. ACTONEL [Concomitant]
     Route: 065
  7. VIOXX [Suspect]
     Indication: ARTHRITIS
     Route: 048
     Dates: start: 20030223, end: 20041202
  8. PRAVACHOL [Concomitant]
     Route: 065
  9. BACLOFEN [Concomitant]
     Route: 065
  10. HYDROCODONE BITARTRATE [Concomitant]
     Route: 065
  11. ARAVA [Concomitant]
     Route: 065

REACTIONS (12)
  - ADVERSE EVENT [None]
  - CARDIAC DISORDER [None]
  - CARDIAC FAILURE [None]
  - CEREBROVASCULAR ACCIDENT [None]
  - CHEST PAIN [None]
  - CORONARY ARTERY DISEASE [None]
  - HEPATOCELLULAR DAMAGE [None]
  - MYOCARDIAL INFARCTION [None]
  - RENAL DISORDER [None]
  - THROMBOSIS [None]
  - ULCER [None]
  - VOMITING [None]
